FAERS Safety Report 7233803 (Version 13)
Quarter: 2013Q3

REPORT INFORMATION
  Report Type: Spontaneous
  Country: US (occurrence: US)
  Receive Date: 20091230
  Receipt Date: 20130801
  Transmission Date: 20140515
  Serious: Yes (Death, Hospitalization, Other)
  Sender: FDA-Public Use
  Company Number: PHEH2009US18125

PATIENT
  Sex: Male

DRUGS (20)
  1. ZOMETA [Suspect]
     Route: 042
  2. FAMOTIDINE [Concomitant]
  3. ACETAMINOPHEN [Concomitant]
  4. ZOFRAN [Concomitant]
  5. ALBUTEROL SULFATE [Concomitant]
  6. DOCUSATE [Concomitant]
  7. PERCOCET [Concomitant]
  8. TARCEVA [Concomitant]
  9. FOLIC ACID [Concomitant]
     Dosage: 0.4 MG, QD
  10. PROCHLORPERAZINE [Concomitant]
     Dosage: 10 MG,
  11. DECADRON                                /CAN/ [Concomitant]
     Dosage: 4 MG, BID
  12. ONDANSETRON [Concomitant]
     Dosage: 8 MG, BID
  13. EMEND [Concomitant]
  14. LOVENOX [Concomitant]
  15. VICODIN [Concomitant]
  16. ARIXTRA [Concomitant]
  17. CHEMOTHERAPEUTICS [Concomitant]
  18. DURAGESIC [Concomitant]
     Dosage: 200 UG, UNK
  19. DILAUDID [Concomitant]
  20. KEPPRA [Concomitant]

REACTIONS (66)
  - Lung neoplasm malignant [Fatal]
  - Bronchostenosis [Fatal]
  - Lymphadenopathy mediastinal [Fatal]
  - Lymphadenopathy [Fatal]
  - Pulmonary oedema [Fatal]
  - Pleural effusion [Fatal]
  - Pericardial effusion [Fatal]
  - Metastases to central nervous system [Fatal]
  - Metastases to liver [Fatal]
  - Metastases to bone [Fatal]
  - Squamous cell carcinoma of lung [Fatal]
  - Acute respiratory failure [Unknown]
  - Deep vein thrombosis [Unknown]
  - Cyst [Unknown]
  - Sinus tachycardia [Unknown]
  - Pneumothorax [Unknown]
  - Chest pain [Unknown]
  - Dyspnoea [Unknown]
  - Pneumonia [Unknown]
  - Osteonecrosis of jaw [Unknown]
  - Injury [Unknown]
  - Pain [Unknown]
  - Emotional distress [Unknown]
  - Anxiety [Unknown]
  - Physical disability [Unknown]
  - Infection [Unknown]
  - Deformity [Unknown]
  - Pulmonary embolism [Unknown]
  - Hydrocele [Unknown]
  - Spinal osteoarthritis [Unknown]
  - Back pain [Unknown]
  - Upper respiratory tract infection [Unknown]
  - Mental status changes [Unknown]
  - Convulsion [Unknown]
  - Pathological fracture [Unknown]
  - Erosive oesophagitis [Unknown]
  - Hiatus hernia [Unknown]
  - Bladder disorder [Unknown]
  - Diverticulum intestinal [Unknown]
  - Abdominal pain [Unknown]
  - Hepatic lesion [Unknown]
  - Asthma [Unknown]
  - Arteriosclerosis coronary artery [Unknown]
  - Nephrolithiasis [Unknown]
  - Bone lesion [Unknown]
  - Benign prostatic hyperplasia [Unknown]
  - Bronchiectasis [Unknown]
  - Overdose [Unknown]
  - Nasal congestion [Unknown]
  - Pelvic pain [Unknown]
  - Constipation [Unknown]
  - Respiratory distress [Unknown]
  - Pyrexia [Unknown]
  - Hyperbilirubinaemia [Unknown]
  - Brain oedema [Unknown]
  - Fall [Unknown]
  - Altered state of consciousness [Unknown]
  - Confusional state [Unknown]
  - Grand mal convulsion [Unknown]
  - Aphasia [Unknown]
  - Diarrhoea [Unknown]
  - Scoliosis [Unknown]
  - Venous thrombosis [Unknown]
  - Osteonecrosis [Unknown]
  - Gastrooesophageal reflux disease [Unknown]
  - Hypoxia [Unknown]
